FAERS Safety Report 25749116 (Version 1)
Quarter: 2025Q3

REPORT INFORMATION
  Report Type: Spontaneous
  Country: US (occurrence: US)
  Receive Date: 20250902
  Receipt Date: 20250902
  Transmission Date: 20251021
  Serious: Yes (Hospitalization)
  Sender: ROCHE
  Company Number: US-MLMSERVICE-20171002-0909850-1

PATIENT
  Age: 56 Year
  Sex: Male

DRUGS (12)
  1. MYCOPHENOLATE MOFETIL [Suspect]
     Active Substance: MYCOPHENOLATE MOFETIL
     Indication: Thrombotic thrombocytopenic purpura
     Route: 065
  2. LACOSAMIDE [Concomitant]
     Active Substance: LACOSAMIDE
  3. ENOXAPARIN [Concomitant]
     Active Substance: ENOXAPARIN
  4. LEVETIRACETAM [Concomitant]
     Active Substance: LEVETIRACETAM
  5. FAMOTIDINE [Concomitant]
     Active Substance: FAMOTIDINE
  6. FENTANYL [Concomitant]
     Active Substance: FENTANYL
  7. PROPOFOL [Concomitant]
     Active Substance: PROPOFOL
  8. NOREPINEPHRINE [Concomitant]
     Active Substance: NOREPINEPHRINE
  9. ASPIRIN [Concomitant]
     Active Substance: ASPIRIN
  10. PHENYTOIN [Concomitant]
     Active Substance: PHENYTOIN
  11. METHYLPREDNISOLONE [Concomitant]
     Active Substance: METHYLPREDNISOLONE
  12. MIDAZOLAM [Concomitant]
     Active Substance: MIDAZOLAM

REACTIONS (6)
  - Platelet production decreased [Not Recovered/Not Resolved]
  - Thrombocytopenia [Not Recovered/Not Resolved]
  - Urinary tract infection pseudomonal [Not Recovered/Not Resolved]
  - Pneumonia [Not Recovered/Not Resolved]
  - Citrobacter infection [Not Recovered/Not Resolved]
  - Escherichia infection [Not Recovered/Not Resolved]
